FAERS Safety Report 15643999 (Version 1)
Quarter: 2018Q4

REPORT INFORMATION
  Report Type: Spontaneous
  Country: US (occurrence: US)
  Receive Date: 20181121
  Receipt Date: 20181121
  Transmission Date: 20190205
  Serious: Yes (Hospitalization)
  Sender: FDA-Public Use
  Company Number: US-ALLERGAN-1853913US

PATIENT
  Sex: Female

DRUGS (2)
  1. VIIBRYD [Suspect]
     Active Substance: VILAZODONE HYDROCHLORIDE
     Indication: PRODUCT USED FOR UNKNOWN INDICATION
     Dosage: 40 MG, UNKNOWN
     Route: 065
  2. VIIBRYD [Suspect]
     Active Substance: VILAZODONE HYDROCHLORIDE
     Dosage: 20 MG, UNKNOWN
     Route: 065

REACTIONS (8)
  - Diarrhoea [Unknown]
  - Serotonin syndrome [Unknown]
  - Tic [Unknown]
  - Tremor [Unknown]
  - Tachycardia [Unknown]
  - Nausea [Unknown]
  - Product dose omission [Unknown]
  - Wolff-Parkinson-White syndrome [Unknown]
